FAERS Safety Report 6936386-3 (Version None)
Quarter: 2010Q3

REPORT INFORMATION
  Report Type: 
  Country: None (occurrence: None)
  Receive Date: 20100817
  Receipt Date: 20100507
  Transmission Date: 20110219
  Serious: No
  Sender: FDA-Public Use
  Company Number: WAES 1005USA00874

PATIENT
  Age: 30 Year
  Sex: Male

DRUGS (4)
  1. ISENTRESS [Suspect]
     Indication: HIV INFECTION
     Dosage: 400 MG/DAILY/PO
     Route: 048
     Dates: start: 20100402, end: 20100423
  2. BACTRIM [Concomitant]
  3. TRUVADA [Concomitant]
  4. DAPTOMYCIN [Concomitant]

REACTIONS (1)
  - RASH [None]
